FAERS Safety Report 7917565-5 (Version None)
Quarter: 2011Q4

REPORT INFORMATION
  Report Type: 
  Country: None (occurrence: None)
  Receive Date: 20111116
  Receipt Date: 20111020
  Transmission Date: 20120403
  Serious: Yes (Hospitalization)
  Sender: FDA-Public Use
  Company Number: US-ROCHE-1013374

PATIENT
  Sex: Female
  Weight: 130 kg

DRUGS (2)
  1. XELODA [Suspect]
     Dosage: EVERY EVENING
     Route: 048
     Dates: start: 20110901
  2. XELODA [Suspect]
     Indication: BREAST CANCER METASTATIC
     Dosage: EVERY MORNING
     Route: 048
     Dates: start: 20110621, end: 20110801

REACTIONS (2)
  - DIARRHOEA [None]
  - SKIN EXFOLIATION [None]
